FAERS Safety Report 8691238 (Version 2)
Quarter: 2012Q4

REPORT INFORMATION
  Report Type: 
  Country: BR (occurrence: BR)
  Receive Date: 20120730
  Receipt Date: 20120829
  Transmission Date: 20130627
  Serious: Yes (Other)
  Sender: FDA-Public Use
  Company Number: PHHY2012BR064714

PATIENT
  Sex: Female

DRUGS (4)
  1. DIOVAN [Suspect]
     Indication: HYPERTENSION
     Dosage: 2 DF, daily (80 mg)
     Dates: start: 201205, end: 201206
  2. DIOVAN [Suspect]
     Dosage: 2 DF, daily (160 mg)
     Dates: start: 201206
  3. RIVOTRIL [Concomitant]
     Indication: STRESS
     Dosage: 1 DF, daily
  4. SLOW-K [Concomitant]
     Indication: HYPOKALAEMIA
     Dosage: 1 DF, daily

REACTIONS (2)
  - Breast cancer [Recovered/Resolved]
  - Blood pressure decreased [Unknown]
